FAERS Safety Report 22089418 (Version 2)
Quarter: 2023Q4

REPORT INFORMATION
  Report Type: Report from Study
  Country: GB (occurrence: None)
  Receive Date: 20230313
  Receipt Date: 20231114
  Transmission Date: 20240109
  Serious: Yes (Other)
  Sender: FDA-Public Use
  Company Number: 2023A059297

PATIENT
  Sex: Male

DRUGS (3)
  1. TAGRISSO [Suspect]
     Active Substance: OSIMERTINIB
     Indication: Lung adenocarcinoma stage IV
     Dosage: 80.0MG UNKNOWN
     Route: 048
     Dates: start: 202202, end: 20220203
  2. TAGRISSO [Suspect]
     Active Substance: OSIMERTINIB
     Indication: Metastases to central nervous system
     Dosage: 80.0MG UNKNOWN
     Route: 048
     Dates: start: 202202, end: 20220203
  3. EDOXABAN [Concomitant]
     Active Substance: EDOXABAN

REACTIONS (3)
  - Metastases to central nervous system [Unknown]
  - Malignant neoplasm progression [Unknown]
  - Product supply issue [Unknown]
